FAERS Safety Report 21794761 (Version 1)
Quarter: 2022Q4

REPORT INFORMATION
  Report Type: Spontaneous
  Country: US (occurrence: US)
  Receive Date: 20221229
  Receipt Date: 20221229
  Transmission Date: 20230113
  Serious: No
  Sender: FDA-Public Use
  Company Number: US-ALKERMES INC.-ALK-2022-006158

PATIENT
  Sex: Male

DRUGS (1)
  1. ARISTADA [Suspect]
     Active Substance: ARIPIPRAZOLE LAUROXIL
     Indication: Product used for unknown indication
     Route: 030

REACTIONS (7)
  - Mental impairment [Unknown]
  - Disturbance in attention [Unknown]
  - Fatigue [Unknown]
  - Injection site reaction [Unknown]
  - Injection site pain [Unknown]
  - Insomnia [Unknown]
  - Restlessness [Unknown]
